FAERS Safety Report 19278672 (Version 1)
Quarter: 2021Q2

REPORT INFORMATION
  Report Type: Spontaneous
  Country: US (occurrence: US)
  Receive Date: 20210519
  Receipt Date: 20210519
  Transmission Date: 20210717
  Serious: No
  Sender: FDA-Public Use
  Company Number: None

PATIENT
  Age: 24 Year
  Sex: Female

DRUGS (3)
  1. HUMIRA [Suspect]
     Active Substance: ADALIMUMAB
     Indication: CROHN^S DISEASE
     Dosage: ?          OTHER FREQUENCY:Q14D;?
     Route: 058
     Dates: start: 20191213
  2. CYANOCOBALMIN 1000MCG/ML SOLN [Concomitant]
     Dates: start: 20191223
  3. ESTARYLLA 0.2535 MG?MCG TAB [Concomitant]
     Dates: start: 20191223

REACTIONS (1)
  - Mood swings [None]

NARRATIVE: CASE EVENT DATE: 20210519
